FAERS Safety Report 10667540 (Version 1)
Quarter: 2014Q4

REPORT INFORMATION
  Report Type: Spontaneous
  Country: US (occurrence: US)
  Receive Date: 20141222
  Receipt Date: 20141222
  Transmission Date: 20150529
  Serious: Yes (Disabling, Other)
  Sender: FDA-Public Use
  Company Number: US-ACTAVIS-2014-27368

PATIENT
  Sex: Female
  Weight: 66 kg

DRUGS (23)
  1. EYLEA [Suspect]
     Active Substance: AFLIBERCEPT
     Dosage: UNK, OS WITH DEXAMETHASONE
     Route: 065
     Dates: start: 20130910, end: 20130910
  2. METOPROLOL [Concomitant]
     Active Substance: METOPROLOL
     Indication: PRODUCT USED FOR UNKNOWN INDICATION
     Dosage: UNK
     Dates: start: 2004
  3. DEXAMETHASONE (WATSON LABORATORIES) [Suspect]
     Active Substance: DEXAMETHASONE
     Dosage: UNK, UNKNOWN
     Route: 031
     Dates: start: 20131119, end: 20131119
  4. DEXAMETHASONE (WATSON LABORATORIES) [Suspect]
     Active Substance: DEXAMETHASONE
     Indication: AGE-RELATED MACULAR DEGENERATION
     Dosage: UNK, UNKNOWN
     Route: 031
     Dates: start: 20130806, end: 20130806
  5. EYLEA [Suspect]
     Active Substance: AFLIBERCEPT
     Dosage: UNK, OD, WITH DEXAMETHASONE
     Route: 065
     Dates: start: 20140922, end: 20140922
  6. EYLEA [Suspect]
     Active Substance: AFLIBERCEPT
     Dosage: UNK OS, WITH DEXAMETHASONE
     Route: 065
     Dates: start: 20140513, end: 20140513
  7. MULTIVITAMIN                       /00097801/ [Concomitant]
     Active Substance: VITAMINS
     Indication: PRODUCT USED FOR UNKNOWN INDICATION
  8. DEXAMETHASONE (WATSON LABORATORIES) [Suspect]
     Active Substance: DEXAMETHASONE
     Dosage: UNK, UNKNOWN
     Route: 031
     Dates: start: 20130910, end: 20130910
  9. EYLEA [Suspect]
     Active Substance: AFLIBERCEPT
     Dosage: UNK, OS
     Route: 065
     Dates: start: 20140211, end: 20140211
  10. EYLEA [Suspect]
     Active Substance: AFLIBERCEPT
     Dosage: UNK, OS
     Route: 065
     Dates: start: 20131008, end: 20131008
  11. NIACIN. [Concomitant]
     Active Substance: NIACIN
     Indication: PRODUCT USED FOR UNKNOWN INDICATION
     Dosage: UNK
     Dates: start: 2004
  12. EYLEA [Suspect]
     Active Substance: AFLIBERCEPT
     Dosage: UNK, OS WITH DEXAMETHASONE
     Route: 065
     Dates: start: 20131119, end: 20131119
  13. CAPTOPRIL. [Concomitant]
     Active Substance: CAPTOPRIL
     Indication: PRODUCT USED FOR UNKNOWN INDICATION
     Dosage: UNK
     Dates: start: 2004
  14. PRESERVISION 3 [Concomitant]
     Indication: PRODUCT USED FOR UNKNOWN INDICATION
     Dosage: UNK
     Dates: start: 2004
  15. DEXAMETHASONE (WATSON LABORATORIES) [Suspect]
     Active Substance: DEXAMETHASONE
     Dosage: UNK, UNKNOWN
     Route: 031
     Dates: start: 20140513, end: 20140513
  16. DEXAMETHASONE (WATSON LABORATORIES) [Suspect]
     Active Substance: DEXAMETHASONE
     Dosage: UNK, UNKNOWN
     Route: 031
     Dates: start: 20140922, end: 20140922
  17. EYLEA [Suspect]
     Active Substance: AFLIBERCEPT
     Indication: AGE-RELATED MACULAR DEGENERATION
     Dosage: UNK, OS, WITH DEXAMETHASONE
     Route: 065
     Dates: start: 20130806
  18. EYLEA [Suspect]
     Active Substance: AFLIBERCEPT
     Dosage: UNK OD
     Route: 065
     Dates: start: 20140603, end: 20140603
  19. EYLEA [Suspect]
     Active Substance: AFLIBERCEPT
     Dosage: UNK OD
     Route: 065
     Dates: start: 20140428, end: 20140428
  20. EYLEA [Suspect]
     Active Substance: AFLIBERCEPT
     Dosage: UNK, EVERY 2 WEEKS
     Route: 065
     Dates: start: 201401
  21. POTASSIUM [Concomitant]
     Active Substance: POTASSIUM
     Indication: PRODUCT USED FOR UNKNOWN INDICATION
     Dosage: UNK
     Dates: start: 2004
  22. EYLEA [Suspect]
     Active Substance: AFLIBERCEPT
     Dosage: 0.05 ML, UNK
     Route: 065
     Dates: start: 20140729, end: 20140729
  23. EYLEA [Suspect]
     Active Substance: AFLIBERCEPT
     Dosage: UNK, OD
     Route: 065
     Dates: start: 20140121, end: 20140121

REACTIONS (4)
  - Lens disorder [Unknown]
  - Blindness transient [Unknown]
  - Cataract [Unknown]
  - Intraocular pressure increased [Unknown]
